FAERS Safety Report 17892927 (Version 1)
Quarter: 2020Q2

REPORT INFORMATION
  Report Type: Other
  Country: FR (occurrence: FR)
  Receive Date: 20200613
  Receipt Date: 20200613
  Transmission Date: 20200714
  Serious: Yes (Other)
  Sender: FDA-Public Use
  Company Number: FR-CADILA HEALTHCARE LIMITED-FR-ZYDUS-052001

PATIENT

DRUGS (5)
  1. LANSOPRAZOLE. [Suspect]
     Active Substance: LANSOPRAZOLE
     Indication: PRODUCT USED FOR UNKNOWN INDICATION
     Dosage: 30 MILLIGRAM
     Route: 048
     Dates: start: 20200319, end: 20200429
  2. CEFEPIME [Concomitant]
     Active Substance: CEFEPIME HYDROCHLORIDE
     Indication: PRODUCT USED FOR UNKNOWN INDICATION
     Route: 042
     Dates: start: 20200406
  3. AMOXICILLIN. [Suspect]
     Active Substance: AMOXICILLIN
     Indication: PRODUCT USED FOR UNKNOWN INDICATION
     Dosage: 3 GRAM
     Route: 042
     Dates: start: 20200414, end: 20200501
  4. DAPTOMYCINE [Suspect]
     Active Substance: DAPTOMYCIN
     Indication: PRODUCT USED FOR UNKNOWN INDICATION
     Dosage: 10 MILLIGRAM/KILOGRAM
     Route: 065
     Dates: start: 20200403, end: 20200414
  5. CANCIDAS [Suspect]
     Active Substance: CASPOFUNGIN ACETATE
     Indication: PRODUCT USED FOR UNKNOWN INDICATION
     Dosage: 70 MILLIGRAM
     Route: 042
     Dates: start: 20200414, end: 20200429

REACTIONS (2)
  - Cholestasis [Recovering/Resolving]
  - Hepatocellular injury [Recovering/Resolving]

NARRATIVE: CASE EVENT DATE: 20200430
